APPROVED DRUG PRODUCT: SITAVIG
Active Ingredient: ACYCLOVIR
Strength: 50MG
Dosage Form/Route: TABLET;BUCCAL
Application: N203791 | Product #001
Applicant: LIGAND PHARMACEUTICALS INC
Approved: Apr 12, 2013 | RLD: Yes | RS: No | Type: DISCN

PATENTS:
Patent 8747896 | Expires: Jun 3, 2027
Patent 8592434 | Expires: Jun 16, 2030
Patent 8791127 | Expires: Mar 23, 2027